FAERS Safety Report 8009247-9 (Version None)
Quarter: 2011Q4

REPORT INFORMATION
  Report Type: 
  Country: None (occurrence: None)
  Receive Date: 20111227
  Receipt Date: 20111220
  Transmission Date: 20120403
  Serious: Yes (Hospitalization, Disabling)
  Sender: FDA-Public Use
  Company Number: PHHY2011GB099997

PATIENT
  Age: 65 Year
  Sex: Male
  Weight: 51 kg

DRUGS (8)
  1. NALOXONE HCL [Suspect]
  2. REQUIP [Suspect]
     Indication: PARKINSONISM
  3. LYRICA [Suspect]
     Indication: ABDOMINAL PAIN
     Dosage: 100 MG, BID
  4. TRAMADOL HCL [Suspect]
     Dosage: 100 MG, TID
  5. LYRICA [Suspect]
     Dosage: 300 MG, BID
     Dates: start: 20080101
  6. ACETAMINOPHEN [Suspect]
     Dosage: 1 G, TID
  7. FENTANYL [Suspect]
     Dosage: 1 DF, TID
  8. ORAMORPH SR [Suspect]
     Dosage: 10 MG, TID

REACTIONS (2)
  - CARDIO-RESPIRATORY ARREST [None]
  - ABDOMINAL PAIN [None]
